FAERS Safety Report 7493366-X (Version None)
Quarter: 2011Q2

REPORT INFORMATION
  Report Type: 
  Country: None (occurrence: None)
  Receive Date: 20110520
  Receipt Date: 20110516
  Transmission Date: 20111010
  Serious: Yes (Hospitalization, Disabling, Other)
  Sender: FDA-Public Use
  Company Number: US-PFIZER INC-2011032293

PATIENT
  Sex: Male

DRUGS (6)
  1. CHANTIX [Suspect]
     Indication: SMOKING CESSATION THERAPY
     Dosage: STARTER MONTHLY PACK AND CONTINUING PACK
     Dates: start: 20080229, end: 20080401
  2. NEURONTIN [Concomitant]
     Indication: DEPRESSION
     Dosage: UNK
     Dates: start: 20070101
  3. HYDROCODONE [Concomitant]
     Indication: ANALGESIC THERAPY
     Dosage: UNK
     Dates: start: 20040101, end: 20090101
  4. HYOSCYAMINE [Concomitant]
     Indication: IRRITABLE BOWEL SYNDROME
     Dosage: UNK
     Dates: start: 20070101, end: 20090101
  5. LEVOXYL [Concomitant]
     Dosage: UNK
     Dates: start: 20070101
  6. NEURONTIN [Concomitant]
     Indication: ANXIETY

REACTIONS (12)
  - LOSS OF CONSCIOUSNESS [None]
  - DEPRESSION [None]
  - ANGER [None]
  - NIGHTMARE [None]
  - INTENTIONAL OVERDOSE [None]
  - AGGRESSION [None]
  - ANXIETY [None]
  - BACK PAIN [None]
  - HOMICIDAL IDEATION [None]
  - CONCUSSION [None]
  - ANTISOCIAL PERSONALITY DISORDER [None]
  - SUICIDE ATTEMPT [None]
